FAERS Safety Report 19498845 (Version 2)
Quarter: 2021Q3

REPORT INFORMATION
  Report Type: Spontaneous
  Country: US (occurrence: US)
  Receive Date: 20210706
  Receipt Date: 20210722
  Transmission Date: 20211014
  Serious: Yes (Hospitalization)
  Sender: FDA-Public Use
  Company Number: US-PARATEK PHARMACEUTICALS, INC.-2021PTK00097

PATIENT
  Age: 34 Year
  Sex: Male

DRUGS (2)
  1. NUZYRA [Suspect]
     Active Substance: OMADACYCLINE
     Indication: STAPHYLOCOCCAL INFECTION
     Dosage: 300 MG, 1X/DAY
     Route: 048
     Dates: start: 20201205, end: 20201205
  2. NUZYRA [Suspect]
     Active Substance: OMADACYCLINE
     Indication: DEVICE RELATED INFECTION
     Dosage: UNK, 2X/DAY
     Route: 048
     Dates: start: 20201206

REACTIONS (2)
  - Hospitalisation [Unknown]
  - Off label use [Recovered/Resolved]

NARRATIVE: CASE EVENT DATE: 20201205
